FAERS Safety Report 5441434-6 (Version None)
Quarter: 2007Q3

REPORT INFORMATION
  Report Type: 
  Country: None (occurrence: None)
  Receive Date: 20070828
  Receipt Date: 20070828
  Transmission Date: 20080115
  Serious: Yes (Other)
  Sender: FDA-Public Use
  Company Number: None

PATIENT
  Sex: Female

DRUGS (1)
  1. HUMIRA [Suspect]
     Indication: RHEUMATOID ARTHRITIS
     Dosage: 40MG EVERY OTHER WEEK SQ
     Route: 058
     Dates: start: 20060925, end: 20070614

REACTIONS (4)
  - ASTHENIA [None]
  - CARPAL TUNNEL SYNDROME [None]
  - HYPOAESTHESIA [None]
  - NEUROPATHY [None]
